FAERS Safety Report 11318446 (Version 2)
Quarter: 2016Q1

REPORT INFORMATION
  Report Type: Report from Study
  Country: US (occurrence: US)
  Receive Date: 20150729
  Receipt Date: 20160119
  Transmission Date: 20160525
  Serious: No
  Sender: FDA-Public Use
  Company Number: PHEH2015US003033

PATIENT
  Age: 52 Year
  Sex: Male

DRUGS (7)
  1. ZORTRESS [Suspect]
     Active Substance: EVEROLIMUS
     Dosage: 1 MG, QD
     Route: 065
  2. ZORTRESS [Suspect]
     Active Substance: EVEROLIMUS
     Indication: LUNG TRANSPLANT
     Dosage: 0.75 MG, BID
     Route: 065
     Dates: start: 20141104
  3. ZORTRESS [Suspect]
     Active Substance: EVEROLIMUS
     Dosage: 2 MG, QD
     Route: 065
  4. ZORTRESS [Suspect]
     Active Substance: EVEROLIMUS
     Dosage: 1 MG, QD
     Route: 065
     Dates: start: 20150325
  5. ZORTRESS [Suspect]
     Active Substance: EVEROLIMUS
     Dosage: 1.5 MG, BID
     Route: 065
     Dates: end: 2015
  6. MYFORTIC [Suspect]
     Active Substance: MYCOPHENOLATE SODIUM
     Indication: LUNG TRANSPLANT
     Dosage: UNK
     Route: 065
     Dates: start: 20141104
  7. ZORTRESS [Suspect]
     Active Substance: EVEROLIMUS
     Dosage: 0.5 MG, BID
     Route: 065

REACTIONS (3)
  - Off label use [Unknown]
  - Renal disorder [Unknown]
  - Immunosuppressant drug level increased [Unknown]

NARRATIVE: CASE EVENT DATE: 20141104
